FAERS Safety Report 17040313 (Version 1)
Quarter: 2019Q4

REPORT INFORMATION
  Report Type: Spontaneous
  Country: US (occurrence: US)
  Receive Date: 20191117
  Receipt Date: 20191117
  Transmission Date: 20200122
  Serious: No
  Sender: FDA-Public Use
  Company Number: US-TORRENT-00007441

PATIENT
  Age: 74 Year
  Weight: 90 kg

DRUGS (2)
  1. LABETOLOL [Suspect]
     Active Substance: LABETALOL HYDROCHLORIDE
     Indication: PRODUCT USED FOR UNKNOWN INDICATION
     Dosage: UNKNOWN
  2. LOSARTAN POTASSIUM TABLETS [Suspect]
     Active Substance: LOSARTAN POTASSIUM
     Indication: BLOOD PRESSURE MEASUREMENT
     Dosage: ONCE A DAY
     Route: 048
     Dates: start: 201811

REACTIONS (3)
  - Tongue discomfort [Recovered/Resolved]
  - Oral discomfort [Recovered/Resolved]
  - Tongue disorder [Recovered/Resolved]
